FAERS Safety Report 5983947-4 (Version None)
Quarter: 2008Q4

REPORT INFORMATION
  Report Type: 
  Country: None (occurrence: None)
  Receive Date: 20081208
  Receipt Date: 20081126
  Transmission Date: 20090506
  Serious: Yes (Hospitalization)
  Sender: FDA-Public Use
  Company Number: ES-ROCHE-599709

PATIENT
  Age: 65 Year
  Sex: Female

DRUGS (5)
  1. CELLCEPT [Suspect]
     Route: 048
     Dates: start: 20080623, end: 20080904
  2. RAPAMUNE [Interacting]
     Dosage: COATED TABLETS
     Route: 048
     Dates: start: 20080623, end: 20080904
  3. PREDNISONE TAB [Interacting]
     Route: 048
     Dates: start: 20080623, end: 20080904
  4. OMEPRAZOLE [Concomitant]
     Route: 048
  5. DARBEPOETIN ALFA [Concomitant]
     Dosage: DRUG REPORTED: DARBEPOETIN
     Route: 058

REACTIONS (2)
  - CYTOMEGALOVIRUS INFECTION [None]
  - DRUG INTERACTION [None]
